FAERS Safety Report 5218282-5 (Version None)
Quarter: 2007Q1

REPORT INFORMATION
  Report Type: 
  Country: None (occurrence: None)
  Receive Date: 20070124
  Receipt Date: 20070112
  Transmission Date: 20070707
  Serious: Yes (Death, Hospitalization)
  Sender: FDA-Public Use
  Company Number: AR-PFIZER INC-2006140704

PATIENT
  Sex: Male
  Weight: 96 kg

DRUGS (13)
  1. SU-011,248 [Suspect]
     Indication: METASTATIC RENAL CELL CARCINOMA
     Route: 048
     Dates: start: 20060502, end: 20061108
  2. ENALAPRIL MALEATE [Concomitant]
     Route: 048
     Dates: start: 20040101, end: 20061110
  3. AMLODIPINE [Concomitant]
     Route: 048
     Dates: start: 20040101, end: 20061110
  4. AMIODARONE HCL [Concomitant]
     Route: 048
     Dates: start: 20040101, end: 20061110
  5. ASPIRIN [Concomitant]
     Route: 048
     Dates: start: 20040101, end: 20061110
  6. CARVEDILOL [Concomitant]
     Route: 048
     Dates: start: 20040101, end: 20061110
  7. AMOXICILLIN + CLAVULANATE POTASSIUM [Concomitant]
     Route: 048
     Dates: start: 20061109, end: 20061110
  8. CEFTRIAXONE [Concomitant]
     Route: 042
     Dates: start: 20061110, end: 20061113
  9. HYDROCORTISONE [Concomitant]
     Route: 042
     Dates: start: 20061110, end: 20061113
  10. RANITIDINE [Concomitant]
     Route: 042
     Dates: start: 20061110, end: 20061113
  11. SALBUTAMOL [Concomitant]
     Route: 055
     Dates: start: 20061112, end: 20061113
  12. VITAMIN K [Concomitant]
     Route: 042
     Dates: start: 20061111, end: 20061113
  13. FLUCONAZOLE [Concomitant]
     Route: 042
     Dates: start: 20061112, end: 20061113

REACTIONS (2)
  - ADRENAL INSUFFICIENCY [None]
  - CARDIO-RESPIRATORY ARREST [None]
